FAERS Safety Report 11525846 (Version 1)
Quarter: 2015Q3

REPORT INFORMATION
  Report Type: Spontaneous
  Country: US (occurrence: US)
  Receive Date: 20150918
  Receipt Date: 20150918
  Transmission Date: 20151125
  Serious: Yes (Other)
  Sender: FDA-Public Use
  Company Number: US-TAKEDA-TPA2012A04256

PATIENT

DRUGS (8)
  1. LISPRO [Concomitant]
     Active Substance: INSULIN LISPRO
     Dates: start: 2002
  2. AMARYL [Concomitant]
     Active Substance: GLIMEPIRIDE
     Dates: start: 2006
  3. ACTOS [Suspect]
     Active Substance: PIOGLITAZONE HYDROCHLORIDE
     Indication: TYPE 2 DIABETES MELLITUS
     Dates: start: 2000, end: 200401
  4. GLARGINE [Concomitant]
     Dates: start: 2002
  5. GLUCOPHAGE [Concomitant]
     Active Substance: METFORMIN HYDROCHLORIDE
     Dates: start: 200408, end: 200412
  6. DIABETA [Concomitant]
     Active Substance: GLYBURIDE
     Dates: start: 200508, end: 200610
  7. METFORMIN [Concomitant]
     Active Substance: METFORMIN HYDROCHLORIDE
     Dates: start: 2003
  8. GLARGINE [Concomitant]
     Dates: start: 2010

REACTIONS (1)
  - Bladder cancer [Unknown]

NARRATIVE: CASE EVENT DATE: 201007
